FAERS Safety Report 6694803-0 (Version None)
Quarter: 2010Q2

REPORT INFORMATION
  Report Type: 
  Country: None (occurrence: None)
  Receive Date: 20100423
  Receipt Date: 20100412
  Transmission Date: 20101027
  Serious: Yes (Other)
  Sender: FDA-Public Use
  Company Number: US-JNJFOC-20100404774

PATIENT
  Age: 21 Year
  Sex: Female
  Weight: 70.76 kg

DRUGS (2)
  1. EXTRA STRENGTH TYLENOL [Suspect]
     Route: 048
  2. EXTRA STRENGTH TYLENOL [Suspect]
     Indication: HEADACHE
     Route: 048

REACTIONS (7)
  - ABDOMINAL PAIN UPPER [None]
  - ABSCESS [None]
  - DIARRHOEA [None]
  - GENITAL RASH [None]
  - NAUSEA [None]
  - PRODUCT QUALITY ISSUE [None]
  - VOMITING [None]
